FAERS Safety Report 12144451 (Version 2)
Quarter: 2016Q1

REPORT INFORMATION
  Report Type: Spontaneous
  Country: US (occurrence: US)
  Receive Date: 20160304
  Receipt Date: 20160310
  Transmission Date: 20160526
  Serious: No
  Sender: FDA-Public Use
  Company Number: US-ASTRAZENECA-2016SE18723

PATIENT
  Age: 9 Year
  Sex: Male
  Weight: 36.3 kg

DRUGS (4)
  1. BUDESONIDE. [Suspect]
     Active Substance: BUDESONIDE
     Indication: NASAL CONGESTION
     Route: 045
     Dates: start: 20160204
  2. BUDESONIDE. [Suspect]
     Active Substance: BUDESONIDE
     Indication: NASAL CONGESTION
     Route: 045
     Dates: start: 20160204
  3. BUDESONIDE. [Suspect]
     Active Substance: BUDESONIDE
     Indication: ASTHMA
     Route: 045
     Dates: start: 20160204
  4. ZYRTEC [Concomitant]
     Active Substance: CETIRIZINE HYDROCHLORIDE
     Indication: SEASONAL ALLERGY
     Dosage: AS REQUIRED

REACTIONS (2)
  - Enuresis [Unknown]
  - Drug dose omission [Unknown]

NARRATIVE: CASE EVENT DATE: 201602
